FAERS Safety Report 8285265-0 (Version None)
Quarter: 2012Q2

REPORT INFORMATION
  Report Type: 
  Country: None (occurrence: None)
  Receive Date: 20120413
  Receipt Date: 20110815
  Transmission Date: 20120825
  Serious: No
  Sender: FDA-Public Use
  Company Number: US-ASTRAZENECA-2011SE48534

PATIENT
  Age: 87 Year
  Sex: Female
  Weight: 45.4 kg

DRUGS (1)
  1. NEXIUM [Suspect]
     Indication: ERUCTATION
     Route: 048
     Dates: start: 20090101

REACTIONS (2)
  - OSTEOPOROSIS [None]
  - OFF LABEL USE [None]
